FAERS Safety Report 4901953-5 (Version None)
Quarter: 2006Q1

REPORT INFORMATION
  Report Type: 
  Country: None (occurrence: None)
  Receive Date: 20060203
  Receipt Date: 20060203
  Transmission Date: 20060701
  Serious: No
  Sender: FDA-Public Use
  Company Number: None

PATIENT
  Age: 60 Year
  Sex: Female
  Weight: 52 kg

DRUGS (10)
  1. SIMVASTATIN [Suspect]
     Indication: DYSLIPIDAEMIA
     Dosage: SEE IMAGE
     Route: 048
     Dates: start: 20040701
  2. SIMVASTATIN [Suspect]
     Indication: DYSLIPIDAEMIA
     Dosage: SEE IMAGE
     Route: 048
     Dates: start: 20050801
  3. METFORMIN HYDROCHLORIDE [Concomitant]
  4. IMDUR [Concomitant]
  5. AVANDIA [Concomitant]
  6. LISINOPRIL AND HYDROCHLOROTHIAZIDE [Concomitant]
  7. CITALOPRAM HYDROBROMIDE [Concomitant]
  8. FISH OIL [Concomitant]
  9. FLONASE [Concomitant]
  10. ASPIRIN [Concomitant]

REACTIONS (3)
  - MYALGIA [None]
  - NAUSEA [None]
  - SWELLING [None]
